FAERS Safety Report 19790293 (Version 1)
Quarter: 2021Q3

REPORT INFORMATION
  Report Type: Report from Study
  Country: GB (occurrence: GB)
  Receive Date: 20210906
  Receipt Date: 20210906
  Transmission Date: 20211014
  Serious: Yes (Other)
  Sender: FDA-Public Use
  Company Number: GB-ADVANZ PHARMA-202108005989

PATIENT

DRUGS (4)
  1. PREDNISOLONE. [Suspect]
     Active Substance: PREDNISOLONE
     Indication: PRODUCT USED FOR UNKNOWN INDICATION
     Dosage: UNK
     Route: 065
  2. IMRALDI [Suspect]
     Active Substance: ADALIMUMAB
     Indication: CROHN^S DISEASE
     Dosage: 160 MG AT WEEK ZERO
     Route: 058
     Dates: start: 20210702
  3. IMRALDI [Suspect]
     Active Substance: ADALIMUMAB
     Dosage: 80 MG, AT WEEK TWO
     Route: 058
  4. IMRALDI [Suspect]
     Active Substance: ADALIMUMAB
     Dosage: 40 MG FORTNIGHTLY ,ONCE IN 2 WEEK
     Route: 058

REACTIONS (5)
  - Fatigue [Unknown]
  - Nausea [Unknown]
  - Lethargy [Recovered/Resolved]
  - Fear of injection [Recovered/Resolved]
  - Crohn^s disease [Unknown]
